FAERS Safety Report 5140981-4 (Version None)
Quarter: 2006Q4

REPORT INFORMATION
  Report Type: 
  Country: None (occurrence: None)
  Receive Date: 20061027
  Receipt Date: 20061027
  Transmission Date: 20070319
  Serious: Yes (Hospitalization)
  Sender: FDA-Public Use
  Company Number: None

PATIENT
  Sex: Male
  Weight: 82.1 kg

DRUGS (5)
  1. OXCARBAZEPINE [Suspect]
     Dosage: 600 MG BID PO
     Route: 048
     Dates: start: 20060913, end: 20060927
  2. INSULIN GLARGINE [Concomitant]
  3. INSULIN LISPOR [Concomitant]
  4. PREDNISONE TAB [Concomitant]
  5. DIPHENHYDRAMINE HCL [Concomitant]

REACTIONS (1)
  - STEVENS-JOHNSON SYNDROME [None]
